FAERS Safety Report 4654780-0 (Version None)
Quarter: 2005Q2

REPORT INFORMATION
  Report Type: 
  Country: None (occurrence: None)
  Receive Date: 20050506
  Receipt Date: 20050426
  Transmission Date: 20051028
  Serious: Yes (Other)
  Sender: FDA-Public Use
  Company Number: GR-ROCHE-403137

PATIENT
  Age: 17 Year
  Sex: Male

DRUGS (2)
  1. ROACCUTANE [Suspect]
     Indication: DRUG USE FOR UNKNOWN INDICATION
     Route: 048
     Dates: start: 20050315, end: 20050415
  2. ROACCUTANE [Suspect]
     Route: 048
     Dates: start: 20050415

REACTIONS (1)
  - GINGIVAL BLEEDING [None]
